FAERS Safety Report 8899841 (Version 2)
Quarter: 2012Q4

REPORT INFORMATION
  Report Type: 
  Country: JP (occurrence: JP)
  Receive Date: 20121109
  Receipt Date: 20121211
  Transmission Date: 20130627
  Serious: Yes (Other)
  Sender: FDA-Public Use
  Company Number: PHHY2012JP102817

PATIENT
  Age: 9 Year
  Sex: Male

DRUGS (3)
  1. TEGRETOL [Suspect]
     Indication: EPILEPSY
     Dosage: 100 mg, daily
     Route: 048
  2. MUCODYNE [Suspect]
     Route: 048
  3. HOKUNALIN [Suspect]
     Route: 062

REACTIONS (2)
  - Mycoplasma infection [Recovered/Resolved]
  - Cough [Recovered/Resolved]
